FAERS Safety Report 4523355-6 (Version None)
Quarter: 2004Q4

REPORT INFORMATION
  Report Type: 
  Country: None (occurrence: None)
  Receive Date: 20041209
  Receipt Date: 20020924
  Transmission Date: 20050328
  Serious: Yes (Death, Hospitalization)
  Sender: FDA-Public Use
  Company Number: 001-0981-M0008063

PATIENT
  Age: 75 Year
  Sex: Male
  Weight: 100 kg

DRUGS (6)
  1. ATORVASTATIN (ATORVASTATIN) [Suspect]
     Indication: CORONARY ARTERY DISEASE
     Dosage: 10 MG (1 IN 1 D), ORAL
     Route: 048
     Dates: start: 19981008, end: 19981206
  2. LISINOPRIL [Concomitant]
  3. METOPROLOL SUCCINATE [Concomitant]
  4. ASPIRIN [Concomitant]
  5. MULTIVITAMINS (ERGOCALCIFEROL,ASCORBIC ACID, FOLIC ACID, THIAMINE HYDR [Concomitant]
  6. IRON (IRON) [Concomitant]

REACTIONS (7)
  - ABDOMINAL ADHESIONS [None]
  - ABDOMINAL HERNIA [None]
  - LARGE INTESTINE PERFORATION [None]
  - PERITONITIS [None]
  - PULMONARY CONGESTION [None]
  - SMALL INTESTINAL OBSTRUCTION [None]
  - SPLENOMEGALY [None]
